FAERS Safety Report 5707801-8 (Version None)
Quarter: 2008Q2

REPORT INFORMATION
  Report Type: 
  Country: None (occurrence: None)
  Receive Date: 20080417
  Receipt Date: 20080407
  Transmission Date: 20081010
  Serious: Yes (Death, Hospitalization)
  Sender: FDA-Public Use
  Company Number: FR-JNJFOC-20080403902

PATIENT
  Sex: Male

DRUGS (10)
  1. TRAMADOL HCL [Suspect]
     Indication: PAIN
     Route: 048
  2. LOVENOX [Suspect]
     Indication: COAGULOPATHY
     Route: 058
  3. SINTROM [Concomitant]
  4. ALLOPURINOL [Concomitant]
  5. LASILIX [Concomitant]
  6. ALDACTONE [Concomitant]
  7. FOZITEC [Concomitant]
  8. CARDENSIEL [Concomitant]
  9. GUTRON [Concomitant]
  10. DI-ANTALVIC [Concomitant]

REACTIONS (3)
  - DEATH [None]
  - INTERNATIONAL NORMALISED RATIO INCREASED [None]
  - PURPURA NON-THROMBOCYTOPENIC [None]
